FAERS Safety Report 5158772-7 (Version None)
Quarter: 2006Q4

REPORT INFORMATION
  Report Type: 
  Country: None (occurrence: None)
  Receive Date: 20061128
  Receipt Date: 20061117
  Transmission Date: 20070319
  Serious: Yes (Hospitalization)
  Sender: FDA-Public Use
  Company Number: 2006AP05453

PATIENT
  Age: 28 Year
  Sex: Female

DRUGS (5)
  1. SEROQUEL [Suspect]
     Indication: PSYCHOTIC DISORDER
     Route: 048
  2. SEROQUEL [Suspect]
     Route: 048
  3. SEROQUEL [Suspect]
     Route: 048
  4. ZUCLOPENTHIXOL [Concomitant]
     Route: 030
  5. ZUCLOPENTHIXOL [Concomitant]
     Dosage: EVERY 10 DAYS
     Route: 030

REACTIONS (3)
  - DRUG EXPOSURE DURING PREGNANCY [None]
  - PALPITATIONS [None]
  - PREGNANCY [None]
